FAERS Safety Report 24647236 (Version 1)
Quarter: 2024Q4

REPORT INFORMATION
  Report Type: Spontaneous
  Country: US (occurrence: US)
  Receive Date: 20241121
  Receipt Date: 20241121
  Transmission Date: 20250115
  Serious: No
  Sender: ALVOGEN
  Company Number: US-ALVOGEN-2024093233

PATIENT
  Sex: Female

DRUGS (1)
  1. TERIPARATIDE [Suspect]
     Active Substance: TERIPARATIDE
     Indication: Osteoporosis
     Dosage: RECEIVED MEDICATION ON 09-FEB-2024?250MCG/ML, 20 MCG DAILY?ONGOING?EXPIRATION DATE: 31-DEC-2024
     Route: 058
     Dates: start: 20240212

REACTIONS (7)
  - Muscle fatigue [Unknown]
  - Bone pain [Unknown]
  - Arthralgia [Unknown]
  - Device malfunction [Unknown]
  - Device operational issue [Unknown]
  - Wrong technique in product usage process [Unknown]
  - Therapeutic response unexpected [Unknown]

NARRATIVE: CASE EVENT DATE: 20240101
